FAERS Safety Report 5116464-4 (Version None)
Quarter: 2006Q3

REPORT INFORMATION
  Report Type: 
  Country: None (occurrence: None)
  Receive Date: 20060928
  Receipt Date: 20060816
  Transmission Date: 20061208
  Serious: Yes (Hospitalization)
  Sender: FDA-Public Use
  Company Number: FRWYE716316AUG06

PATIENT
  Age: 51 Year
  Sex: Female

DRUGS (4)
  1. ENBREL [Suspect]
     Indication: RHEUMATOID ARTHRITIS
     Dosage: UNKNOWN
     Route: 058
     Dates: start: 20060101, end: 20060711
  2. LEVOTHYROXINE SODIUM [Concomitant]
     Route: 048
  3. NOVATREX [Concomitant]
     Dosage: 4 TABLETS TOTAL WEEKLY
     Route: 048
  4. CORTANCYL [Concomitant]
     Route: 048

REACTIONS (7)
  - IRIS ADHESIONS [None]
  - MULTIPLE SCLEROSIS [None]
  - MYELITIS [None]
  - OPTIC NEUROPATHY [None]
  - SALIVARY GLAND DISORDER [None]
  - SJOGREN'S SYNDROME [None]
  - XEROPHTHALMIA [None]
